FAERS Safety Report 4949552-3 (Version None)
Quarter: 2006Q1

REPORT INFORMATION
  Report Type: 
  Country: None (occurrence: None)
  Receive Date: 20060127
  Receipt Date: 20050208
  Transmission Date: 20060701
  Serious: Yes (Hospitalization)
  Sender: FDA-Public Use
  Company Number: 05-02-0176

PATIENT
  Age: 38 Year
  Sex: Male

DRUGS (6)
  1. CLOZAPINE [Suspect]
     Indication: SCHIZOPHRENIA
     Dosage: 300-400 MG QD ORAL
     Route: 048
     Dates: start: 20000501
  2. NICOTINE [Suspect]
     Dosage: STEP 37MG TRANSDERMAL
     Route: 062
     Dates: end: 20050207
  3. EFFEXOR [Concomitant]
  4. VITAMIN E [Concomitant]
  5. LOPID [Concomitant]
  6. ABILIFY [Concomitant]

REACTIONS (2)
  - CONFUSIONAL STATE [None]
  - DELIRIUM [None]
